FAERS Safety Report 9032719 (Version 1)
Quarter: 2013Q1

REPORT INFORMATION
  Report Type: Spontaneous
  Country: US (occurrence: None)
  Receive Date: 20130110
  Receipt Date: 20130110
  Transmission Date: 20140127
  Serious: Yes (Hospitalization, Other)
  Sender: FDA-Public Use
  Company Number: DAV-AE-MTX-13-03

PATIENT
  Age: 18 Year
  Sex: Female

DRUGS (1)
  1. METHOTREXATE [Suspect]
     Indication: OSTEOSARCOMA
     Route: 042

REACTIONS (3)
  - Neurotoxicity [None]
  - Cerebrovascular accident [None]
  - Drug clearance decreased [None]
